FAERS Safety Report 24612436 (Version 3)
Quarter: 2025Q1

REPORT INFORMATION
  Report Type: Spontaneous
  Country: KR (occurrence: KR)
  Receive Date: 20241113
  Receipt Date: 20250328
  Transmission Date: 20250409
  Serious: Yes (Hospitalization)
  Sender: SAMSUNG BIOEPIS
  Company Number: KR-SAMSUNG BIOEPIS-SB-2024-33644

PATIENT
  Age: 68 Year
  Sex: Female
  Weight: 47.85 kg

DRUGS (10)
  1. TRASTUZUMAB [Suspect]
     Active Substance: TRASTUZUMAB
     Indication: Gallbladder cancer
     Route: 042
  2. NIVOLUMAB [Suspect]
     Active Substance: NIVOLUMAB
     Indication: Gallbladder cancer
     Route: 042
  3. GEMCITABINE [Suspect]
     Active Substance: GEMCITABINE
     Indication: Gallbladder cancer
     Route: 042
  4. CISPLATIN [Suspect]
     Active Substance: CISPLATIN
     Indication: Gallbladder cancer
     Route: 042
  5. URUSA [Concomitant]
     Active Substance: URSODIOL
     Indication: Product used for unknown indication
     Dates: start: 20241101, end: 20241110
  6. DIETARY SUPPLEMENT\HERBALS\MILK THISTLE [Concomitant]
     Active Substance: MILK THISTLE
     Indication: Product used for unknown indication
     Dosage: CAPSULE;
     Dates: start: 20241101, end: 20241110
  7. BEECOM [Concomitant]
     Indication: Product used for unknown indication
     Dates: start: 20241101, end: 20241110
  8. PROIMER [Concomitant]
     Indication: Product used for unknown indication
     Dates: start: 2015
  9. PRAPEXOLE [Concomitant]
     Indication: Product used for unknown indication
     Dates: start: 2015
  10. PERKIN 25-100 [Concomitant]
     Indication: Product used for unknown indication
     Dates: start: 2015

REACTIONS (2)
  - Cholangitis [Recovered/Resolved]
  - Off label use [Unknown]

NARRATIVE: CASE EVENT DATE: 20241102
